FAERS Safety Report 4570529-4 (Version None)
Quarter: 2005Q1

REPORT INFORMATION
  Report Type: 
  Country: None (occurrence: None)
  Receive Date: 20050202
  Receipt Date: 20040810
  Transmission Date: 20050727
  Serious: Yes (Hospitalization)
  Sender: FDA-Public Use
  Company Number: WAES 0501DEU00249

PATIENT
  Age: 62 Year
  Sex: Female

DRUGS (4)
  1. VYTORIN [Suspect]
     Indication: HYPERLIPIDAEMIA
     Dosage: 10-10 MG/DAILY, PO
     Route: 048
     Dates: start: 20040713, end: 20040728
  2. ASPIRIN [Concomitant]
  3. INSULIN GLARGINE [Concomitant]
  4. METFORMIN HCL [Concomitant]

REACTIONS (4)
  - DIZZINESS [None]
  - HYPERTENSIVE CRISIS [None]
  - NAUSEA [None]
  - VOMITING [None]
